FAERS Safety Report 9462549 (Version 2)
Quarter: 2013Q3

REPORT INFORMATION
  Report Type: Report from Study
  Country: JP (occurrence: JP)
  Receive Date: 20130816
  Receipt Date: 20130920
  Transmission Date: 20140515
  Serious: Yes (Death, Hospitalization)
  Sender: FDA-Public Use
  Company Number: JP-AMGEN-JPNCT2013057715

PATIENT
  Age: 77 Year
  Sex: Female
  Weight: 53 kg

DRUGS (22)
  1. ROMIPLOSTIM - KHK [Suspect]
     Indication: IMMUNE THROMBOCYTOPENIC PURPURA
     Dosage: 1 MUG/KG, QD
     Route: 058
     Dates: start: 20120425, end: 20120425
  2. ROMIPLOSTIM - KHK [Suspect]
     Dosage: 2 MUG/KG, QWK
     Route: 058
     Dates: start: 20120502, end: 20120509
  3. ROMIPLOSTIM - KHK [Suspect]
     Dosage: 2 MUG/KG, QD
     Route: 058
     Dates: start: 20120605, end: 20120605
  4. ROMIPLOSTIM - KHK [Suspect]
     Dosage: 3 MUG/KG, QWK
     Route: 058
     Dates: start: 20120612, end: 20120619
  5. ROMIPLOSTIM - KHK [Suspect]
     Dosage: 4 MUG/KG, QD
     Route: 058
     Dates: start: 20120626, end: 20120626
  6. ROMIPLOSTIM - KHK [Suspect]
     Dosage: 5 MUG/KG, QWK
     Route: 058
     Dates: start: 20120703, end: 20120710
  7. ROMIPLOSTIM - KHK [Suspect]
     Dosage: 4 MUG/KG, QWK
     Route: 058
     Dates: start: 20120706, end: 20120706
  8. ROMIPLOSTIM - KHK [Suspect]
     Dosage: 5 MUG/KG, QWK
     Route: 058
     Dates: start: 20120802, end: 20120823
  9. ROMIPLOSTIM - KHK [Suspect]
     Dosage: 4 MUG/KG, QWK
     Route: 058
     Dates: start: 20120913, end: 20120920
  10. ROMIPLOSTIM - KHK [Suspect]
     Dosage: 5 MUG/KG, QWK
     Route: 058
     Dates: start: 20121018, end: 20121025
  11. ROMIPLOSTIM - KHK [Suspect]
     Dosage: 5 MUG/KG, QD
     Route: 058
     Dates: start: 20121115, end: 20121115
  12. ROMIPLOSTIM - KHK [Suspect]
     Dosage: 3 MUG/KG, QD
     Route: 058
     Dates: start: 20121129, end: 20121129
  13. PREDONINE [Concomitant]
     Indication: IMMUNE THROMBOCYTOPENIC PURPURA
     Dosage: 7.5 MG, UNK
     Route: 048
     Dates: start: 20120806, end: 20121208
  14. REVOLADE [Concomitant]
     Indication: IMMUNE THROMBOCYTOPENIC PURPURA
     Dosage: 12.5 MG, UNK
     Route: 048
     Dates: start: 20120714, end: 20120726
  15. AMLODIN [Concomitant]
     Indication: HYPERTENSION
     Dosage: UNK
     Route: 048
  16. OMEPRAZOLE [Concomitant]
     Indication: GASTROOESOPHAGEAL REFLUX DISEASE
     Dosage: UNK
     Route: 065
  17. BONOTEO [Concomitant]
     Indication: OSTEOPOROSIS
     Dosage: UNK
     Route: 048
  18. TAKEPRON [Concomitant]
     Indication: GASTROOESOPHAGEAL REFLUX DISEASE
     Dosage: UNK
     Route: 048
  19. DAIKENTYUTO [Concomitant]
     Indication: COLON CANCER
     Dosage: UNK
     Route: 048
  20. HERBAL PREPARATION [Concomitant]
     Indication: COLON CANCER
     Route: 048
  21. PNEUMOVAX [Concomitant]
     Indication: PROPHYLAXIS
     Dosage: UNK
     Route: 065
  22. PLATELET CONCENTRATE [Concomitant]
     Dosage: UNK
     Dates: start: 20120426, end: 20120730

REACTIONS (2)
  - Death [Fatal]
  - Atrioventricular block second degree [Recovering/Resolving]
